FAERS Safety Report 14446650 (Version 1)
Quarter: 2018Q1

REPORT INFORMATION
  Report Type: Spontaneous
  Country: US (occurrence: US)
  Receive Date: 20180126
  Receipt Date: 20180126
  Transmission Date: 20180509
  Serious: Yes (Hospitalization, Other)
  Sender: FDA-Public Use
  Company Number: US-VIIV HEALTHCARE LIMITED-US2018010115

PATIENT
  Age: 67 Year
  Sex: Female

DRUGS (8)
  1. EPZICOM [Suspect]
     Active Substance: ABACAVIR SULFATE\LAMIVUDINE
     Indication: HIV INFECTION
     Dosage: 1 MG, QD
     Route: 048
  2. LEXIVA [Suspect]
     Active Substance: FOSAMPRENAVIR CALCIUM
     Indication: HIV INFECTION
     Dosage: 2 DF, BID
     Route: 048
  3. ATORVASTATIN [Concomitant]
     Active Substance: ATORVASTATIN
  4. DICLOFENAC [Concomitant]
     Active Substance: DICLOFENAC
  5. HYDROCHLOROTHIAZIDE + TRIAMTERENE [Concomitant]
     Active Substance: HYDROCHLOROTHIAZIDE\TRIAMTERENE
  6. LUNESTA [Concomitant]
     Active Substance: ESZOPICLONE
  7. VICODIN [Concomitant]
     Active Substance: ACETAMINOPHEN\HYDROCODONE BITARTRATE
  8. XANAX [Concomitant]
     Active Substance: ALPRAZOLAM

REACTIONS (16)
  - Emotional distress [Unknown]
  - Fibrocystic breast disease [Unknown]
  - Mouth cyst [Unknown]
  - Swelling [Unknown]
  - Pain [Unknown]
  - Gait disturbance [Unknown]
  - Tremor [Unknown]
  - Glaucoma [Unknown]
  - Gastric cyst [Unknown]
  - Abdominal discomfort [Unknown]
  - Polyp [Unknown]
  - Intestinal cyst [Unknown]
  - Fall [Unknown]
  - Neck injury [Unknown]
  - Brain oedema [Unknown]
  - Arthritis [Unknown]

NARRATIVE: CASE EVENT DATE: 2013
